FAERS Safety Report 9838527 (Version 1)
Quarter: 2013Q4

REPORT INFORMATION
  Report Type: Spontaneous
  Country: US (occurrence: None)
  Receive Date: 20131206
  Receipt Date: 20131206
  Transmission Date: 20140711
  Serious: Yes (Hospitalization, Other)
  Sender: FDA-Public Use
  Company Number: 385577

PATIENT
  Age: 77 Year
  Sex: Female
  Weight: 63 kg

DRUGS (5)
  1. NOVOLOG [Suspect]
     Indication: TYPE 1 DIABETES MELLITUS
     Dosage: SLIDING SCALE 3-4 TIMES A DAY, SUBCUTANEOUS
     Route: 058
     Dates: start: 2009
  2. LANTUS [Suspect]
     Indication: TYPE 1 DIABETES MELLITUS
     Route: 058
     Dates: start: 2009, end: 2011
  3. SPIRONOLACTONE (SPIRONOLACTONE) [Concomitant]
  4. COZAAR (LOSARTAN POTASSIUM) [Concomitant]
  5. TOPROL (METOPROLOL SUCCINATE) [Concomitant]

REACTIONS (2)
  - Hypoglycaemic unconsciousness [None]
  - Blood glucose fluctuation [None]
